FAERS Safety Report 4824091-9 (Version None)
Quarter: 2005Q4

REPORT INFORMATION
  Report Type: 
  Country: None (occurrence: None)
  Receive Date: 20051108
  Receipt Date: 20051027
  Transmission Date: 20060501
  Serious: Yes (Hospitalization, Other)
  Sender: FDA-Public Use
  Company Number: HQWYE313831OCT05

PATIENT
  Age: 50 Year
  Sex: Male
  Weight: 87.62 kg

DRUGS (1)
  1. ADVIL [Suspect]
     Indication: PAIN
     Dosage: 2 LIQUI-GELS ONE TIME, ORAL
     Route: 048
     Dates: start: 20051021, end: 20051021

REACTIONS (8)
  - DRUG HYPERSENSITIVITY [None]
  - DYSPNOEA [None]
  - LOCAL SWELLING [None]
  - OEDEMA PERIPHERAL [None]
  - SWELLING FACE [None]
  - SWOLLEN TONGUE [None]
  - TONGUE DISORDER [None]
  - URTICARIA [None]
